FAERS Safety Report 9461966 (Version 1)
Quarter: 2013Q3

REPORT INFORMATION
  Report Type: Spontaneous
  Country: FR (occurrence: FR)
  Receive Date: 20130816
  Receipt Date: 20130816
  Transmission Date: 20140515
  Serious: Yes (Hospitalization)
  Sender: FDA-Public Use
  Company Number: FR-PFIZER INC-2013234985

PATIENT
  Age: 81 Year
  Sex: Female

DRUGS (13)
  1. LYRICA [Suspect]
     Dosage: 75 MG, 1X/DAY
     Route: 048
     Dates: start: 20130330
  2. LYRICA [Suspect]
     Dosage: UNK
  3. LYRICA [Suspect]
     Dosage: 150 MG, 2X/DAY
  4. LYRICA [Suspect]
     Dosage: DECREASED DOSE (NOT STATED)
  5. LYRICA [Suspect]
     Dosage: UNK
     Dates: end: 20130613
  6. ACTIQ [Suspect]
     Dosage: UNK
     Route: 002
     Dates: start: 20130502
  7. SULFARLEM [Concomitant]
     Dosage: UNK
     Route: 048
  8. FORLAX [Concomitant]
     Dosage: UNK
     Route: 048
  9. SERESTA [Concomitant]
     Dosage: 10 MG, 1X/DAY
     Route: 048
  10. IXPRIM [Concomitant]
     Dosage: 4 DF, AS NEEDED
     Route: 048
  11. OXYCONTIN [Concomitant]
     Dosage: 20 MG, 1X/DAY
     Route: 048
     Dates: start: 20130502
  12. OXYNORM [Concomitant]
     Dosage: UNK
     Route: 048
     Dates: start: 20130502
  13. UVEDOSE [Concomitant]

REACTIONS (2)
  - Cholestasis [Recovering/Resolving]
  - Confusional state [Unknown]
